FAERS Safety Report 11893234 (Version 1)
Quarter: 2016Q1

REPORT INFORMATION
  Report Type: Other
  Country: IT (occurrence: IT)
  Receive Date: 20160106
  Receipt Date: 20160106
  Transmission Date: 20160526
  Serious: Yes (Hospitalization)
  Sender: FDA-Public Use
  Company Number: IT-MYLANLABS-2015M1047664

PATIENT

DRUGS (1)
  1. DONEPEZIL MYLAN GENERICS 5 MG COMPRESSE RIVESTITE CON FILM [Suspect]
     Active Substance: DONEPEZIL
     Indication: SENILE DEMENTIA
     Dosage: 5 MG, QD
     Route: 048
     Dates: start: 20151001, end: 20151117

REACTIONS (3)
  - Sopor [Recovering/Resolving]
  - Cachexia [Recovering/Resolving]
  - Hyponatraemia [Recovering/Resolving]

NARRATIVE: CASE EVENT DATE: 20151115
